FAERS Safety Report 22267505 (Version 6)
Quarter: 2023Q4

REPORT INFORMATION
  Report Type: Spontaneous
  Country: US (occurrence: US)
  Receive Date: 20230429
  Receipt Date: 20231113
  Transmission Date: 20240109
  Serious: Yes (Hospitalization)
  Sender: FDA-Public Use
  Company Number: US-SA-SAC20230426000554

PATIENT

DRUGS (1)
  1. LARONIDASE [Suspect]
     Active Substance: LARONIDASE
     Indication: Mucopolysaccharidosis I
     Dosage: 8.7 (UNITS NOT PROVIDED), QW
     Route: 042
     Dates: start: 20230314

REACTIONS (3)
  - Laboratory test abnormal [Unknown]
  - Stem cell transplant [Not Recovered/Not Resolved]
  - Chemotherapy [Unknown]

NARRATIVE: CASE EVENT DATE: 20230101
